FAERS Safety Report 9500442 (Version 1)
Quarter: 2013Q3

REPORT INFORMATION
  Report Type: Spontaneous
  Country: US (occurrence: None)
  Receive Date: 20130904
  Receipt Date: 20130904
  Transmission Date: 20140515
  Serious: Yes (Disabling, Other)
  Sender: FDA-Public Use
  Company Number: None

PATIENT
  Age: 73 Year
  Sex: Female
  Weight: 68.04 kg

DRUGS (9)
  1. ALKA SELTZER COLD OTC REGULAR ALKA SELTZER [Suspect]
     Indication: NASOPHARYNGITIS
     Dosage: ONE DAY, ONE DOSE
  2. LEVOTHYROXINE [Concomitant]
  3. PRAMIPEXOLE [Concomitant]
  4. SYMVISTATIN [Concomitant]
  5. IRON [Concomitant]
  6. VITAMIN C [Concomitant]
  7. MUTIVITAMIN [Concomitant]
  8. B [Concomitant]
  9. BABY ASPIRIN [Concomitant]

REACTIONS (4)
  - Disorientation [None]
  - Thinking abnormal [None]
  - Memory impairment [None]
  - Disturbance in attention [None]
